FAERS Safety Report 20480221 (Version 1)
Quarter: 2022Q1

REPORT INFORMATION
  Report Type: Report from Study
  Country: CA (occurrence: CA)
  Receive Date: 20220216
  Receipt Date: 20220216
  Transmission Date: 20220423
  Serious: Yes (Other)
  Sender: FDA-Public Use
  Company Number: CA-BAUSCH-BL-2021-029542

PATIENT

DRUGS (10)
  1. CONTRAVE [Suspect]
     Active Substance: BUPROPION HYDROCHLORIDE\NALTREXONE HYDROCHLORIDE
     Indication: Weight control
     Dosage: 90MG/8MG, WEEK 1, 1 TABLET IN MORNING
     Route: 048
     Dates: start: 20210802, end: 20210808
  2. CONTRAVE [Suspect]
     Active Substance: BUPROPION HYDROCHLORIDE\NALTREXONE HYDROCHLORIDE
     Dosage: 90MG/8MG, WEEK 2, 1 TABLET IN MORNING, 1 TABLET IN EVENING
     Route: 048
     Dates: start: 20210809, end: 20210815
  3. CONTRAVE [Suspect]
     Active Substance: BUPROPION HYDROCHLORIDE\NALTREXONE HYDROCHLORIDE
     Dosage: 90MG/8MG,WEEK 3 ONWARDS, 2 TABLET IN MORNING, 1 TABLET IN EVENING
     Route: 048
     Dates: start: 20210816
  4. CONTRAVE [Suspect]
     Active Substance: BUPROPION HYDROCHLORIDE\NALTREXONE HYDROCHLORIDE
     Dosage: 90MG/8MG, 1 TAB/DAY
     Route: 048
     Dates: start: 20220110, end: 20220113
  5. CONTRAVE [Suspect]
     Active Substance: BUPROPION HYDROCHLORIDE\NALTREXONE HYDROCHLORIDE
     Dosage: 90MG/8MG, 1 TAB Q AM
     Route: 048
     Dates: start: 20220118
  6. CONTRAVE [Suspect]
     Active Substance: BUPROPION HYDROCHLORIDE\NALTREXONE HYDROCHLORIDE
     Dosage: 90MG/8MG, 1 TAB Q AM, 1 TAB Q PM
     Route: 048
     Dates: start: 20220120
  7. CONTRAVE [Suspect]
     Active Substance: BUPROPION HYDROCHLORIDE\NALTREXONE HYDROCHLORIDE
     Dosage: 90MG/8MG, 2 TAB Q AM, 1 TAB Q PM
     Route: 048
     Dates: start: 20220122
  8. CONTRAVE [Suspect]
     Active Substance: BUPROPION HYDROCHLORIDE\NALTREXONE HYDROCHLORIDE
     Dosage: 90MG/8MG, 2 TAB Q AM, 2 TAB Q PM
     Route: 048
     Dates: start: 20220131
  9. CYMBALTA [Concomitant]
     Active Substance: DULOXETINE HYDROCHLORIDE
     Indication: Depression
     Dosage: 60 MG, 1 IN 1 D
     Route: 048
  10. PANTALOC [Concomitant]
     Indication: Gastrooesophageal reflux disease
     Dosage: 1 IN 1 D
     Route: 048

REACTIONS (14)
  - Breast conserving surgery [Recovered/Resolved]
  - COVID-19 [Not Recovered/Not Resolved]
  - Hypersomnia [Not Recovered/Not Resolved]
  - Menstruation delayed [Not Recovered/Not Resolved]
  - Migraine [Recovered/Resolved]
  - Nausea [Recovered/Resolved]
  - Fatigue [Recovered/Resolved]
  - Dizziness [Recovered/Resolved]
  - Headache [Recovered/Resolved]
  - Constipation [Not Recovered/Not Resolved]
  - Dry mouth [Not Recovered/Not Resolved]
  - Drug titration error [Unknown]
  - Intentional product use issue [Unknown]
  - Contraindicated product administered [Unknown]

NARRATIVE: CASE EVENT DATE: 20210801
